FAERS Safety Report 25464801 (Version 1)
Quarter: 2025Q2

REPORT INFORMATION
  Report Type: Spontaneous
  Country: DE (occurrence: DE)
  Receive Date: 20250622
  Receipt Date: 20250622
  Transmission Date: 20250716
  Serious: Yes (Other)
  Sender: AUROBINDO
  Company Number: DE-BRISTOL-MYERS SQUIBB COMPANY-2025-077130

PATIENT
  Age: 75 Year
  Sex: Female
  Weight: 72 kg

DRUGS (3)
  1. OXALIPLATIN [Suspect]
     Active Substance: OXALIPLATIN
     Indication: Oesophageal adenocarcinoma
     Route: 042
     Dates: start: 20241210, end: 20250304
  2. FLUOROURACIL [Suspect]
     Active Substance: FLUOROURACIL
     Indication: Oesophageal adenocarcinoma
     Route: 042
     Dates: start: 20241210
  3. OPDIVO [Suspect]
     Active Substance: NIVOLUMAB
     Indication: Oesophageal adenocarcinoma
     Route: 042
     Dates: start: 20241210

REACTIONS (3)
  - Polyneuropathy [Unknown]
  - Pruritus [Unknown]
  - Tachycardia [Unknown]

NARRATIVE: CASE EVENT DATE: 20250128
